FAERS Safety Report 14055037 (Version 1)
Quarter: 2017Q4

REPORT INFORMATION
  Report Type: Spontaneous
  Country: US (occurrence: None)
  Receive Date: 20171006
  Receipt Date: 20171006
  Transmission Date: 20180321
  Serious: Yes (Death, Hospitalization)
  Sender: FDA-Public Use
  Company Number: None

PATIENT
  Age: 22 Year
  Sex: Male
  Weight: 59 kg

DRUGS (2)
  1. CAMPTOSAR [Suspect]
     Active Substance: IRINOTECAN HYDROCHLORIDE
     Dates: end: 20150710
  2. TEMOZOLOMIDE. [Suspect]
     Active Substance: TEMOZOLOMIDE
     Dates: end: 20150710

REACTIONS (8)
  - Pupils unequal [None]
  - Cerebral haemorrhage [None]
  - Vomiting [None]
  - Gait disturbance [None]
  - Disorientation [None]
  - Hemiparesis [None]
  - Gaze palsy [None]
  - Confusional state [None]

NARRATIVE: CASE EVENT DATE: 20150802
